FAERS Safety Report 23955955 (Version 1)
Quarter: 2024Q2

REPORT INFORMATION
  Report Type: Spontaneous
  Country: US (occurrence: None)
  Receive Date: 20240607
  Receipt Date: 20240607
  Transmission Date: 20240716
  Serious: Yes (Hospitalization)
  Sender: FDA-Public Use
  Company Number: None

PATIENT
  Age: 33 Year
  Sex: Female

DRUGS (11)
  1. FORTEO [Suspect]
     Active Substance: TERIPARATIDE
     Indication: Osteoporosis
     Dosage: 20 UGM DALY SUBCUTANEOUS
     Route: 058
     Dates: start: 20220927
  2. ALBUTEROL SULFATE [Concomitant]
     Active Substance: ALBUTEROL SULFATE
  3. fluticasone/vilanterol 20-25mcg [Concomitant]
  4. ipratropium/albuterol 0.513mg [Concomitant]
  5. Levothyroxine 0.088mg [Concomitant]
  6. SIMVASTATIN [Concomitant]
     Active Substance: SIMVASTATIN
  7. FLUTICASONE [Concomitant]
     Active Substance: FLUTICASONE
  8. LORATADINE [Concomitant]
     Active Substance: LORATADINE
  9. ASPIRIN [Concomitant]
     Active Substance: ASPIRIN
  10. Zinc 50mg [Concomitant]
  11. NAPROXEN [Concomitant]
     Active Substance: NAPROXEN

REACTIONS (1)
  - Fall [None]

NARRATIVE: CASE EVENT DATE: 20240602
